FAERS Safety Report 5167761-8 (Version None)
Quarter: 2006Q4

REPORT INFORMATION
  Report Type: 
  Country: None (occurrence: None)
  Receive Date: 20061204
  Receipt Date: 20061204
  Transmission Date: 20070319
  Serious: Yes (Other)
  Sender: FDA-Public Use
  Company Number: None

PATIENT
  Age: 57 Year
  Sex: Female
  Weight: 47.1741 kg

DRUGS (2)
  1. CITALOPRAM 20MG DR.REDDY'S [Suspect]
     Indication: DRUG THERAPY CHANGED
     Dosage: 1 TABLET 1 QID PO
     Route: 048
     Dates: start: 20060714, end: 20060721
  2. LEVOTHYROXINE 50MCG LANNETT [Suspect]
     Indication: HYPOTHYROIDISM
     Dosage: 1 TABLET 1 QID PO
     Route: 048
     Dates: start: 20061004, end: 20061104

REACTIONS (15)
  - APHASIA [None]
  - ASTHENIA [None]
  - CEREBROVASCULAR ACCIDENT [None]
  - DYSARTHRIA [None]
  - GENERAL PHYSICAL HEALTH DETERIORATION [None]
  - HEADACHE [None]
  - HYPOAESTHESIA ORAL [None]
  - HYPOTHYROIDISM [None]
  - INSOMNIA [None]
  - MEMORY IMPAIRMENT [None]
  - MUSCLE SPASMS [None]
  - MUSCULAR WEAKNESS [None]
  - NAUSEA [None]
  - ORAL INTAKE REDUCED [None]
  - WEIGHT DECREASED [None]
